FAERS Safety Report 21327719 (Version 1)
Quarter: 2022Q3

REPORT INFORMATION
  Report Type: Spontaneous
  Country: IN (occurrence: IN)
  Receive Date: 20220913
  Receipt Date: 20220913
  Transmission Date: 20221027
  Serious: Yes (Other)
  Sender: FDA-Public Use
  Company Number: IN-Accord-276857

PATIENT
  Sex: Female

DRUGS (1)
  1. DOCETAXEL [Suspect]
     Active Substance: DOCETAXEL
     Indication: Triple negative breast cancer

REACTIONS (3)
  - Pleural effusion [Unknown]
  - Capillary leak syndrome [Unknown]
  - Neuropathy peripheral [Unknown]
